FAERS Safety Report 11051441 (Version 1)
Quarter: 2015Q2

REPORT INFORMATION
  Report Type: Spontaneous
  Country: US (occurrence: None)
  Receive Date: 20150420
  Receipt Date: 20150420
  Transmission Date: 20150821
  Serious: No
  Sender: FDA-Public Use
  Company Number: None

PATIENT
  Age: 58 Year
  Sex: Female
  Weight: 64.41 kg

DRUGS (3)
  1. VIT D SUPPLEMENT [Concomitant]
  2. PICATO [Suspect]
     Active Substance: INGENOL MEBUTATE
     Indication: SKIN DISORDER
     Dosage: 2 TUBES, ONCE DAILY, APPLIED TO A SURFACE, USUALLY THE SKIN
     Dates: start: 20150414
  3. CALCIUM [Concomitant]
     Active Substance: CALCIUM

REACTIONS (6)
  - Application site burn [None]
  - Chills [None]
  - Application site warmth [None]
  - Pyrexia [None]
  - Application site vesicles [None]
  - Erythema [None]

NARRATIVE: CASE EVENT DATE: 20150414
